FAERS Safety Report 20207312 (Version 1)
Quarter: 2021Q4

REPORT INFORMATION
  Report Type: Spontaneous
  Country: US (occurrence: US)
  Receive Date: 20211220
  Receipt Date: 20211220
  Transmission Date: 20220303
  Serious: No
  Sender: FDA-Public Use
  Company Number: US-NOVEN PHARMACEUTICALS, INC.-2021US001590

PATIENT
  Sex: Female
  Weight: 61.224 kg

DRUGS (1)
  1. ESTRADIOL [Suspect]
     Active Substance: ESTRADIOL
     Indication: Hysterectomy
     Dosage: 0.075 MG, UNK
     Route: 062
     Dates: start: 202005

REACTIONS (2)
  - Application site dermatitis [Not Recovered/Not Resolved]
  - Application site irritation [Not Recovered/Not Resolved]
